FAERS Safety Report 13489309 (Version 1)
Quarter: 2017Q2

REPORT INFORMATION
  Report Type: Spontaneous
  Country: US (occurrence: US)
  Receive Date: 20170426
  Receipt Date: 20170426
  Transmission Date: 20170830
  Serious: No
  Sender: FDA-Public Use
  Company Number: None

PATIENT
  Age: 55 Year
  Sex: Female

DRUGS (8)
  1. CALCIUM [Concomitant]
     Active Substance: CALCIUM
  2. VITAMIN B12/FA [Concomitant]
  3. SMZ/TMP [Concomitant]
     Active Substance: SULFAMETHOXAZOLE\TRIMETHOPRIM
  4. GABAPENTIN. [Concomitant]
     Active Substance: GABAPENTIN
  5. OCALIVA [Suspect]
     Active Substance: OBETICHOLIC ACID
     Indication: HEPATIC CIRRHOSIS
     Route: 048
     Dates: start: 201703
  6. EZETIMIBE. [Concomitant]
     Active Substance: EZETIMIBE
  7. VITAMIN D [Concomitant]
     Active Substance: CHOLECALCIFEROL
  8. TRAMADOL. [Concomitant]
     Active Substance: TRAMADOL

REACTIONS (3)
  - Fatigue [None]
  - Abdominal distension [None]
  - Constipation [None]

NARRATIVE: CASE EVENT DATE: 201703
